FAERS Safety Report 7737958-9 (Version None)
Quarter: 2011Q3

REPORT INFORMATION
  Report Type: 
  Country: None (occurrence: None)
  Receive Date: 20110908
  Receipt Date: 20110906
  Transmission Date: 20111222
  Serious: Yes (Hospitalization, Other)
  Sender: FDA-Public Use
  Company Number: PHEH2008US03987

PATIENT
  Sex: Female
  Weight: 78.005 kg

DRUGS (47)
  1. ONDANSETRON [Concomitant]
     Dosage: 4 MG, UNK
  2. DILAUDID [Concomitant]
     Route: 042
  3. LEVAQUIN [Concomitant]
  4. KETOCONAZOLE [Concomitant]
  5. RESTORIL [Suspect]
     Dosage: 21 RESTORIL TABLETS IN A PERIOD OF THREE DAYS
  6. TAMOXIFEN CITRATE [Suspect]
  7. ALBUTEROL SULFATE AUTOHALER [Concomitant]
  8. AMBIEN [Concomitant]
     Route: 048
  9. OXYCONTIN [Concomitant]
     Dosage: 20 MG, Q12H
  10. ACIPHEX [Concomitant]
  11. CARAFATE [Concomitant]
  12. PEPCID [Concomitant]
  13. ACETAMINOPHEN [Concomitant]
     Route: 048
  14. HEPARIN SODIUM [Concomitant]
  15. ATIVAN [Concomitant]
  16. DEMEROL [Concomitant]
     Dosage: 12.5 MG, BID
     Route: 042
  17. BIAXIN [Concomitant]
  18. ARIPIPRAZOLE [Concomitant]
     Dosage: 10 MG, QD
  19. PROTONIX [Concomitant]
     Route: 048
  20. MIDAZOLAM HCL [Concomitant]
     Dosage: 2.5 MG, BID
  21. PHENERGAN HCL [Concomitant]
  22. MAALOX                                  /USA/ [Concomitant]
  23. TORADOL [Concomitant]
  24. TOPROL-XL [Concomitant]
  25. EPHEDRINE [Concomitant]
  26. EFFEXOR [Concomitant]
     Dosage: 37.5 MG, TID
     Route: 048
  27. CEFAZOLIN [Concomitant]
     Dosage: 1 G, Q8H
  28. VANCOMYCIN [Concomitant]
  29. ANASTROZOLE [Concomitant]
  30. MORPHINE [Concomitant]
  31. AUGMENTIN '125' [Concomitant]
  32. REPLIVA [Concomitant]
  33. ZOMETA [Suspect]
     Indication: METASTASES TO BONE
     Dosage: 4 MG, QMO
     Route: 042
     Dates: start: 19970101
  34. AREDIA [Suspect]
     Dosage: 90 MG, UNK
  35. LITHIUM CARBONATE [Suspect]
     Indication: BIPOLAR I DISORDER
  36. ANCEF [Concomitant]
     Route: 042
  37. DURAGESIC-100 [Concomitant]
     Dosage: 100 UG, Q72H
  38. XANAX [Concomitant]
  39. LAMICTAL [Concomitant]
  40. FENTANYL-100 [Concomitant]
  41. COLACE [Concomitant]
     Dosage: 100 MG, BID
     Route: 048
  42. ZOFRAN [Concomitant]
  43. PERCOCET [Concomitant]
     Route: 048
  44. NALBUPHINE [Concomitant]
  45. NALOXONE [Concomitant]
     Route: 042
  46. VICODIN [Concomitant]
  47. LISINOPRIL [Concomitant]

REACTIONS (72)
  - WEIGHT DECREASED [None]
  - ANXIETY [None]
  - ARTHROPATHY [None]
  - ABDOMINAL PAIN [None]
  - NAUSEA [None]
  - HISTOPLASMOSIS [None]
  - METASTASES TO BONE [None]
  - DIAPHRAGMATIC HERNIA [None]
  - DYSPHAGIA [None]
  - BIPOLAR I DISORDER [None]
  - TOXICITY TO VARIOUS AGENTS [None]
  - OESOPHAGITIS [None]
  - PLEURAL EFFUSION [None]
  - GINGIVAL INFECTION [None]
  - GENERAL PHYSICAL HEALTH DETERIORATION [None]
  - SINUS TACHYCARDIA [None]
  - PELVIC PAIN [None]
  - DRY MOUTH [None]
  - ACQUIRED DIAPHRAGMATIC EVENTRATION [None]
  - PAIN [None]
  - CHEST PAIN [None]
  - BACK PAIN [None]
  - VOMITING [None]
  - HYPOKALAEMIA [None]
  - APPENDICITIS [None]
  - INTERVERTEBRAL DISC PROTRUSION [None]
  - RENAL FAILURE ACUTE [None]
  - SPINAL OSTEOARTHRITIS [None]
  - SPLENIC LESION [None]
  - FACIAL BONES FRACTURE [None]
  - PAIN IN EXTREMITY [None]
  - CONSTIPATION [None]
  - PNEUMOTHORAX [None]
  - DYSPHONIA [None]
  - HOT FLUSH [None]
  - ASTHMA [None]
  - OSTEONECROSIS OF JAW [None]
  - LOOSE TOOTH [None]
  - DECREASED INTEREST [None]
  - TENDONITIS [None]
  - INSOMNIA [None]
  - BONE PAIN [None]
  - SNORING [None]
  - MENORRHAGIA [None]
  - PEPTIC ULCER [None]
  - URINARY TRACT INFECTION [None]
  - CONFUSIONAL STATE [None]
  - TOOTH ABSCESS [None]
  - OVERDOSE [None]
  - PLEURAL FIBROSIS [None]
  - HYPOPHAGIA [None]
  - DEPRESSED MOOD [None]
  - SKIN DISORDER [None]
  - GASTROOESOPHAGEAL REFLUX DISEASE [None]
  - HYPERTENSION [None]
  - METASTASES TO SPINE [None]
  - ULCER [None]
  - PULMONARY FIBROSIS [None]
  - LUNG NEOPLASM [None]
  - MENOPAUSAL SYMPTOMS [None]
  - TREMOR [None]
  - ODYNOPHAGIA [None]
  - OSTEOARTHRITIS [None]
  - EXPOSED BONE IN JAW [None]
  - HAEMORRHOIDS [None]
  - DIARRHOEA [None]
  - DYSTONIA [None]
  - BREAST CANCER RECURRENT [None]
  - ANAEMIA [None]
  - INTERVERTEBRAL DISC DEGENERATION [None]
  - GASTRITIS [None]
  - FALL [None]
